FAERS Safety Report 6872797-2 (Version None)
Quarter: 2010Q3

REPORT INFORMATION
  Report Type: 
  Country: None (occurrence: None)
  Receive Date: 20100723
  Receipt Date: 20090206
  Transmission Date: 20110219
  Serious: No
  Sender: FDA-Public Use
  Company Number: US-PFIZER INC-2008090052

PATIENT
  Sex: Female
  Weight: 61.2 kg

DRUGS (7)
  1. CHANTIX [Suspect]
     Indication: SMOKING CESSATION THERAPY
     Dosage: UNK
     Dates: start: 20081022
  2. DEPAKOTE [Concomitant]
     Indication: CONVULSION
     Dosage: 250 MG, 3X/DAY
  3. CARBATROL [Concomitant]
     Indication: CONVULSION
     Dosage: 300 MG, 2X/DAY
  4. KEPPRA [Concomitant]
     Indication: CONVULSION
     Dosage: 750 MG, 3X/DAY
  5. PRIMIDONE [Concomitant]
     Indication: CONVULSION
     Dosage: 250 MG, 2X/DAY
  6. CITALOPRAM [Concomitant]
     Indication: DEPRESSION
  7. SEROQUEL [Concomitant]
     Dosage: 25 MG, 2 IN THE MORNING AND 3 AT BEDTIME

REACTIONS (6)
  - AGITATION [None]
  - ANXIETY [None]
  - DISTURBANCE IN ATTENTION [None]
  - FEELING JITTERY [None]
  - NERVOUSNESS [None]
  - PRURITUS [None]
